FAERS Safety Report 25021523 (Version 1)
Quarter: 2025Q1

REPORT INFORMATION
  Report Type: Report from Study
  Country: CO (occurrence: CO)
  Receive Date: 20250228
  Receipt Date: 20250228
  Transmission Date: 20250409
  Serious: Yes (Death)
  Sender: UCB
  Company Number: CO-UCBSA-2025011297

PATIENT
  Age: 79 Year
  Sex: Female

DRUGS (1)
  1. LACOSAMIDE [Suspect]
     Active Substance: LACOSAMIDE
     Indication: Epilepsy
     Dosage: 10 MILLILITER, 2X/DAY (BID)
     Route: 048
     Dates: start: 20241001, end: 20250106

REACTIONS (1)
  - Death [Fatal]

NARRATIVE: CASE EVENT DATE: 20250106
